FAERS Safety Report 14024440 (Version 2)
Quarter: 2018Q4

REPORT INFORMATION
  Report Type: Spontaneous
  Country: US (occurrence: US)
  Receive Date: 20170928
  Receipt Date: 20181016
  Transmission Date: 20190204
  Serious: No
  Sender: FDA-Public Use
  Company Number: US-SA-2017SA006445

PATIENT
  Age: 66 Year
  Sex: Female
  Weight: 93.44 kg

DRUGS (11)
  1. METFORMIN [Concomitant]
     Active Substance: METFORMIN HYDROCHLORIDE
     Dosage: UNK UNK,UNK
  2. FISH OIL [Concomitant]
     Active Substance: FISH OIL
     Dosage: UNK UNK,UNK
  3. AUBAGIO [Suspect]
     Active Substance: TERIFLUNOMIDE
     Indication: MULTIPLE SCLEROSIS
     Dosage: 14 MG,QD
     Route: 048
     Dates: start: 20161219
  4. ASA [Concomitant]
     Active Substance: ASPIRIN
     Dosage: UNK UNK,UNK
  5. BUMETANIDE. [Concomitant]
     Active Substance: BUMETANIDE
     Dosage: UNK UNK,UNK
     Route: 065
  6. AMLODIPINE BESILATE [Concomitant]
     Active Substance: AMLODIPINE BESYLATE
     Dosage: UNK UNK,UNK
  7. ACETYLSALICYLIC ACID [Concomitant]
     Active Substance: ASPIRIN
     Dosage: UNK UNK,UNK
  8. VALSARTAN. [Concomitant]
     Active Substance: VALSARTAN
     Dosage: UNK UNK,UNK
  9. CENTRUM SILVER [ASCORBIC ACID;BETACAROTENE;BIOTIN;CALCIUM;CHROMIUM;COL [Concomitant]
     Dosage: UNK UNK,UNK
  10. SIMVASTATIN. [Concomitant]
     Active Substance: SIMVASTATIN
     Dosage: UNK UNK,UNK
  11. VALTREX [Concomitant]
     Active Substance: VALACYCLOVIR HYDROCHLORIDE
     Dosage: UNK UNK,UNK

REACTIONS (9)
  - Constipation [Unknown]
  - Dysarthria [Unknown]
  - Hypersomnia [Unknown]
  - Memory impairment [Unknown]
  - Tongue discomfort [Unknown]
  - Paraesthesia oral [Unknown]
  - Depression [Unknown]
  - Decreased interest [Unknown]
  - Depressed mood [Unknown]

NARRATIVE: CASE EVENT DATE: 20161222
